FAERS Safety Report 4301713-2 (Version None)
Quarter: 2004Q1

REPORT INFORMATION
  Report Type: 
  Country: None (occurrence: None)
  Receive Date: 20040219
  Receipt Date: 20040216
  Transmission Date: 20041129
  Serious: Yes (Life-Threatening, Hospitalization)
  Sender: FDA-Public Use
  Company Number: 7438

PATIENT
  Age: 19 Year
  Sex: Female

DRUGS (10)
  1. THIOPENTONE [Suspect]
  2. SUCCINYLCHOLINE CHLORIDE [Concomitant]
  3. FENTANYL [Suspect]
  4. MORPHINE [Suspect]
  5. VERAPAMIL [Suspect]
  6. BUPIVACAINE [Suspect]
  7. CEFUROXIME [Suspect]
  8. METRONIDAZOLE [Suspect]
  9. EPHEDRINE [Suspect]
  10. IODINE [Suspect]

REACTIONS (6)
  - ERYTHEMA [None]
  - HYPOTENSION [None]
  - PRURITUS [None]
  - STRIDOR [None]
  - SWELLING FACE [None]
  - WHEEZING [None]
